FAERS Safety Report 17328981 (Version 1)
Quarter: 2020Q1

REPORT INFORMATION
  Report Type: Spontaneous
  Country: ES (occurrence: ES)
  Receive Date: 20200127
  Receipt Date: 20200127
  Transmission Date: 20200409
  Serious: Yes (Hospitalization)
  Sender: FDA-Public Use
  Company Number: ES-BAYER-2020-009963

PATIENT
  Age: 75 Year
  Sex: Male

DRUGS (2)
  1. KETOISDIN [Suspect]
     Active Substance: KETOCONAZOLE
     Dosage: UNK
     Route: 061
     Dates: start: 20190525, end: 20190530
  2. CIPROFLOXACIN. [Suspect]
     Active Substance: CIPROFLOXACIN
     Dosage: 500 MG, QD
     Route: 048
     Dates: start: 20190519, end: 20190525

REACTIONS (1)
  - Pemphigoid [Recovered/Resolved]

NARRATIVE: CASE EVENT DATE: 20190530
